FAERS Safety Report 23697077 (Version 1)
Quarter: 2024Q2

REPORT INFORMATION
  Report Type: Report from Study
  Country: US (occurrence: None)
  Receive Date: 20240402
  Receipt Date: 20240402
  Transmission Date: 20240716
  Serious: Yes (Death, Other)
  Sender: FDA-Public Use
  Company Number: 2023A174683

PATIENT
  Age: 30928 Day
  Sex: Male

DRUGS (1)
  1. BEVESPI AEROSPHERE [Suspect]
     Active Substance: FORMOTEROL FUMARATE\GLYCOPYRROLATE
     Indication: Chronic obstructive pulmonary disease
     Route: 055

REACTIONS (9)
  - Cardiac failure congestive [Unknown]
  - Death [Fatal]
  - Fall [Unknown]
  - Hip fracture [Unknown]
  - Chronic kidney disease [Unknown]
  - Gait disturbance [Unknown]
  - Shoulder fracture [Unknown]
  - Renal impairment [Unknown]
  - Pneumonia [Unknown]

NARRATIVE: CASE EVENT DATE: 20230218
